FAERS Safety Report 5179763-6 (Version None)
Quarter: 2006Q4

REPORT INFORMATION
  Report Type: 
  Country: None (occurrence: None)
  Receive Date: 20061212
  Receipt Date: 20061129
  Transmission Date: 20070319
  Serious: Yes (Life-Threatening, Hospitalization, Other)
  Sender: FDA-Public Use
  Company Number: 2006137482

PATIENT
  Age: 81 Year
  Sex: Male

DRUGS (14)
  1. SOLU-CORTEF [Suspect]
     Indication: PREMEDICATION
     Dosage: 250 MG (250 MG, 1 IN 1 D), INTRAVENOUS
     Route: 042
     Dates: start: 20061023, end: 20061023
  2. SOLU-MEDROL [Suspect]
     Indication: PREMEDICATION
     Dosage: 40 MG (40 MG, 1 IN 1 D), INTRAVENOUS
     Route: 042
     Dates: start: 20061006, end: 20061024
  3. ALFALCALCIDOL (ALFACALCIDOL) [Concomitant]
  4. MUCODYNE (CARBOCISTEINE) [Concomitant]
  5. PREDNISOLONE [Concomitant]
  6. SELBEX (TEPRENONE) [Concomitant]
  7. FAMOTIDINE [Concomitant]
  8. ENALAPRIL MALEATE [Concomitant]
  9. MAGNESIUM OXIDE (MAGNESIUM OXIDE) [Concomitant]
  10. LASIX [Concomitant]
  11. PRIMOBOLAN-DEPOT INJ [Concomitant]
  12. PREDNISOLONE [Concomitant]
  13. FLUITRAN (TRICHLORMETHIAZIDE) [Concomitant]
  14. CLARITHROMYCIN [Concomitant]

REACTIONS (6)
  - DEEP VEIN THROMBOSIS [None]
  - DYSPNOEA [None]
  - FEELING HOT [None]
  - HEPARIN-INDUCED THROMBOCYTOPENIA [None]
  - LUNG DISORDER [None]
  - SHOCK [None]
